FAERS Safety Report 7551069-7 (Version None)
Quarter: 2011Q2

REPORT INFORMATION
  Report Type: 
  Country: None (occurrence: None)
  Receive Date: 20110616
  Receipt Date: 20110609
  Transmission Date: 20111010
  Serious: Yes (Hospitalization)
  Sender: FDA-Public Use
  Company Number: US-SANOFI-AVENTIS-2011SA034031

PATIENT
  Age: 60 Year
  Sex: Male
  Weight: 127.3 kg

DRUGS (64)
  1. BLINDED THERAPY [Suspect]
     Route: 065
     Dates: start: 20110506, end: 20110522
  2. TYLENOL-500 [Concomitant]
     Route: 048
     Dates: start: 20110420, end: 20110420
  3. AZITHROMYCIN [Concomitant]
     Route: 042
     Dates: start: 20110420, end: 20110423
  4. PEPCID [Concomitant]
     Route: 048
     Dates: start: 20110506, end: 20110520
  5. ATROVENT [Concomitant]
     Route: 055
     Dates: start: 20110420, end: 20110423
  6. PNEUMOCOCCAL VACCINE [Concomitant]
     Route: 030
     Dates: start: 20110421, end: 20110421
  7. AUGMENTIN '125' [Concomitant]
     Route: 048
     Dates: start: 20110423, end: 20110427
  8. ALBUTEROL SULFATE AUTOHALER [Concomitant]
     Dosage: 2 PUFFS DOSE:2 PUFF(S)
     Route: 055
     Dates: start: 20110423, end: 20110426
  9. LOPRESSOR [Concomitant]
     Route: 048
     Dates: start: 20110506, end: 20110509
  10. NITROGLYCERIN [Concomitant]
     Dosage: DOSE:0.5 INCH(ES)
     Route: 061
     Dates: start: 20110503, end: 20110505
  11. K-DUR [Concomitant]
     Route: 048
     Dates: start: 20110522
  12. CARVEDILOL [Concomitant]
     Route: 048
     Dates: start: 20100101, end: 20110420
  13. CARVEDILOL [Concomitant]
     Route: 048
     Dates: start: 20100101, end: 20110420
  14. ROBITUSSIN DM /USA/ [Concomitant]
     Route: 048
     Dates: start: 20110421, end: 20110423
  15. ADVAIR DISKUS 100/50 [Concomitant]
     Dosage: 500/100 MG TOTAL DAILY DOSE
     Route: 055
     Dates: start: 20110421, end: 20110426
  16. PLAVIX [Concomitant]
     Route: 048
     Dates: start: 20110506, end: 20110525
  17. VANCOMYCIN [Concomitant]
     Route: 042
     Dates: start: 20110505, end: 20110505
  18. ZOFRAN [Concomitant]
     Route: 042
     Dates: start: 20110506, end: 20110506
  19. BLINDED THERAPY [Suspect]
     Route: 065
     Dates: start: 20110506, end: 20110522
  20. TERAZOSIN HCL [Concomitant]
     Route: 048
     Dates: start: 20020529, end: 20110504
  21. POTASSIUM CHLORIDE [Concomitant]
     Route: 048
     Dates: start: 20000101, end: 20110509
  22. NEXIUM [Concomitant]
     Route: 048
     Dates: start: 20110423, end: 20110505
  23. NIFEREX FORTE [Concomitant]
     Route: 048
     Dates: start: 20110509, end: 20110509
  24. DEXTROSE 5% [Concomitant]
     Dosage: 50 ML/HR
     Route: 042
     Dates: start: 20110505, end: 20110505
  25. DRONEDARONE HCL [Suspect]
     Indication: ATRIAL FIBRILLATION
     Route: 065
     Dates: start: 20110429, end: 20110503
  26. BLINDED THERAPY [Suspect]
     Route: 065
     Dates: start: 20110429, end: 20110503
  27. AVALIDE [Concomitant]
     Dosage: 300-25 MG DAILY DOSE
     Route: 048
     Dates: start: 20100101, end: 20110420
  28. SODIUM CHLORIDE [Concomitant]
     Dosage: 75 ML/HR CONTINUOUS INFUSION
     Route: 041
     Dates: start: 20110421, end: 20110422
  29. LOPRESSOR [Concomitant]
     Route: 040
     Dates: start: 20110522, end: 20110523
  30. LOVENOX [Concomitant]
     Route: 058
     Dates: start: 20110506, end: 20110509
  31. LANTUS [Concomitant]
     Dosage: DOSE:10 UNIT(S)
     Route: 058
     Dates: start: 20110506, end: 20110508
  32. MAGNESIUM SULFATE [Concomitant]
     Route: 042
     Dates: start: 20110505, end: 20110505
  33. MORPHINE [Concomitant]
     Route: 042
     Dates: start: 20110505, end: 20110506
  34. AMBIEN [Concomitant]
     Route: 048
     Dates: start: 20000101
  35. PROVENTIL [Concomitant]
     Route: 055
     Dates: start: 20110420, end: 20110423
  36. ROCEPHIN [Concomitant]
     Route: 042
     Dates: start: 20110421, end: 20110422
  37. NEXIUM [Concomitant]
     Route: 042
     Dates: start: 20110423, end: 20110423
  38. PEPCID [Concomitant]
     Route: 048
     Dates: start: 20110421, end: 20110423
  39. HYDROCHLOROTHIAZIDE [Concomitant]
     Route: 048
     Dates: start: 20110423, end: 20110504
  40. COREG [Concomitant]
     Route: 048
     Dates: start: 20110423, end: 20110521
  41. LOPRESSOR [Concomitant]
     Route: 042
     Dates: start: 20110427, end: 20110427
  42. ASCORBIC ACID [Concomitant]
     Route: 048
     Dates: start: 20110506, end: 20110509
  43. ANCEF [Concomitant]
     Route: 042
     Dates: start: 20110505, end: 20110506
  44. K-DUR [Concomitant]
     Route: 048
     Dates: start: 20110505, end: 20110509
  45. LOVENOX [Concomitant]
     Route: 058
     Dates: start: 20110421, end: 20110421
  46. AVAPRO [Concomitant]
     Route: 048
     Dates: start: 20110421, end: 20110504
  47. PROCARDIA XL [Concomitant]
     Route: 048
     Dates: start: 20110421, end: 20110421
  48. MAGNESIUM OXIDE/VITAMINS NOS/ZINC SULFATE [Concomitant]
     Route: 048
     Dates: start: 20110423, end: 20110423
  49. LOPRESSOR [Concomitant]
     Route: 048
     Dates: start: 20110427, end: 20110427
  50. LOPRESSOR [Concomitant]
     Route: 048
     Dates: start: 20110522
  51. XANAX [Concomitant]
     Route: 048
     Dates: start: 20110504, end: 20110504
  52. FEOSOL [Concomitant]
     Route: 048
     Dates: start: 20110509, end: 20110509
  53. INSULIN LISPRO [Concomitant]
     Dosage: UNITS AS NEEDED PER SLIDING SCALE
     Route: 058
     Dates: start: 20110506, end: 20110508
  54. LORTAB [Concomitant]
     Route: 048
     Dates: start: 20110509
  55. ANDROGEL [Concomitant]
     Dosage: 25/2.5 GM DAILY DOSE
     Route: 061
     Dates: start: 20100101
  56. SURFAK [Concomitant]
     Route: 048
     Dates: start: 20110506, end: 20110509
  57. LASIX [Concomitant]
     Route: 048
     Dates: start: 20110507, end: 20110509
  58. FLEXERIL [Concomitant]
     Route: 048
     Dates: start: 20110508, end: 20110509
  59. ASPIRIN [Concomitant]
     Route: 048
     Dates: start: 20000101
  60. ASPIRIN [Concomitant]
     Route: 048
     Dates: start: 20110506, end: 20110520
  61. TYLENOL-500 [Concomitant]
     Route: 048
     Dates: start: 20000101
  62. AVAPRO [Concomitant]
     Route: 048
     Dates: start: 20110522
  63. NORCO [Concomitant]
     Route: 048
     Dates: start: 20110506, end: 20110509
  64. REGULAR INSULIN [Concomitant]
     Dosage: 0.5 UNITS/HOUR
     Route: 042
     Dates: start: 20110505, end: 20110506

REACTIONS (1)
  - ATRIAL FIBRILLATION [None]
